FAERS Safety Report 5237312-8 (Version None)
Quarter: 2007Q1

REPORT INFORMATION
  Report Type: 
  Country: None (occurrence: None)
  Receive Date: 20070213
  Receipt Date: 20070131
  Transmission Date: 20070707
  Serious: Yes (Life-Threatening, Hospitalization)
  Sender: FDA-Public Use
  Company Number: AU-NOVOPROD-260045

PATIENT
  Sex: Male
  Weight: 160 kg

DRUGS (21)
  1. NOVOSEVEN [Suspect]
     Indication: TRAUMATIC HAEMORRHAGE
     Dosage: 3 DOSES
     Route: 042
     Dates: start: 20070113, end: 20070113
  2. MORPHINE [Concomitant]
     Indication: ANALGESIC EFFECT
     Dosage: 4 MG/HR
     Route: 042
     Dates: start: 20070113
  3. MIDAZOLAM HCL [Concomitant]
     Indication: SEDATION
     Dosage: 4 MG/HR
     Route: 042
     Dates: start: 20070113
  4. CEFAZOLIN [Concomitant]
     Indication: ANTIBIOTIC PROPHYLAXIS
     Dosage: 2 MG, QD
     Route: 042
     Dates: start: 20070113, end: 20070115
  5. TETANUS ADS IMPFSTOFF [Concomitant]
     Indication: IMMUNISATION
     Dosage: .5 ML, UNK
     Route: 030
     Dates: start: 20070113, end: 20070113
  6. ESOMEPRAZOLE MAGNESIUM [Concomitant]
     Indication: PROPHYLAXIS AGAINST GASTROINTESTINAL ULCER
     Dosage: 40 MG, UNK
     Route: 042
     Dates: start: 20070113
  7. ENOXAPARIN SODIUM [Concomitant]
     Indication: ANTICOAGULANT THERAPY
     Dosage: 40 MG, QD
     Route: 042
     Dates: start: 20070114, end: 20070115
  8. THIAMINE [Concomitant]
     Indication: VITAMIN SUPPLEMENTATION
     Dosage: 100 MG, QD
     Route: 042
     Dates: start: 20070114, end: 20070116
  9. CERNEVIT                           /01027001/ [Concomitant]
     Indication: VITAMIN SUPPLEMENTATION
     Dosage: UNK, PRN
     Dates: start: 20070114, end: 20070117
  10. TIMENTIN                           /00703201/ [Concomitant]
     Indication: ANTIBIOTIC PROPHYLAXIS
     Dosage: 3.1 G, QID
     Route: 042
     Dates: start: 20070114, end: 20070115
  11. VECURONIUM BROMIDE [Concomitant]
     Indication: PARALYSIS
     Dosage: 10 MG, QD
     Route: 042
     Dates: start: 20070114
  12. ADRENALINE                         /00003901/ [Concomitant]
     Dosage: 1-20 MCG/MIN
     Route: 042
     Dates: start: 20070114
  13. AMISULPRID [Concomitant]
     Indication: PSYCHIATRIC SYMPTOM
     Dosage: 400 MG, QD
     Route: 048
  14. LITHIUM CARBONATE [Concomitant]
     Dosage: 450 MG, QD
     Route: 048
  15. FLUOXETINE [Concomitant]
     Indication: PSYCHIATRIC SYMPTOM
     Dosage: 80 MG, QD
     Route: 048
  16. BENZOTROPINE [Concomitant]
     Indication: PSYCHIATRIC SYMPTOM
     Dosage: 2 MG, QD
     Route: 048
  17. NORADRENALINE [Concomitant]
     Dates: start: 20070114
  18. AMISULPRIDE [Concomitant]
     Dosage: NGT, QD
  19. LACTULOSE [Concomitant]
     Dosage: 20 ML, BID
     Dates: start: 20070118
  20. PARACETAMOL [Concomitant]
     Dosage: 1 G, QID
     Route: 048
     Dates: start: 20070114
  21. ACTRAPID [Concomitant]
     Dosage: 2 U, UNK
     Route: 042
     Dates: start: 20070119

REACTIONS (4)
  - CARDIAC ARREST [None]
  - JOINT DISLOCATION [None]
  - PULMONARY EMBOLISM [None]
  - SEPSIS [None]
